FAERS Safety Report 21148923 (Version 1)
Quarter: 2022Q3

REPORT INFORMATION
  Report Type: Spontaneous
  Country: US (occurrence: None)
  Receive Date: 20220729
  Receipt Date: 20220729
  Transmission Date: 20221026
  Serious: Yes (Hospitalization)
  Sender: FDA-Public Use
  Company Number: None

PATIENT
  Sex: Male

DRUGS (1)
  1. ZIEXTENZO [Suspect]
     Active Substance: PEGFILGRASTIM-BMEZ
     Indication: Lymphocytic leukaemia
     Dosage: OTHER FREQUENCY : EVERY 21 DAYS;?
     Route: 058

REACTIONS (3)
  - Lymphocytic leukaemia [None]
  - Leukaemia recurrent [None]
  - Therapy cessation [None]
